FAERS Safety Report 15684672 (Version 1)
Quarter: 2018Q4

REPORT INFORMATION
  Report Type: Spontaneous
  Country: JP (occurrence: JP)
  Receive Date: 20181204
  Receipt Date: 20181204
  Transmission Date: 20190205
  Serious: Yes (Hospitalization)
  Sender: FDA-Public Use
  Company Number: JP-PFIZER INC-2018492729

PATIENT
  Age: 69 Year
  Sex: Female

DRUGS (3)
  1. 5-FU [FLUOROURACIL] [Suspect]
     Active Substance: FLUOROURACIL
     Indication: BREAST CANCER STAGE II
  2. CYCLOPHOSPHAMIDE. [Suspect]
     Active Substance: CYCLOPHOSPHAMIDE
     Indication: BREAST CANCER STAGE II
  3. EPIRUBICIN HCL [Suspect]
     Active Substance: EPIRUBICIN HYDROCHLORIDE
     Indication: BREAST CANCER STAGE II
     Dosage: UNK

REACTIONS (3)
  - Disseminated intravascular coagulation [Recovering/Resolving]
  - Sepsis [Recovering/Resolving]
  - Febrile neutropenia [Recovering/Resolving]
